FAERS Safety Report 18277840 (Version 1)
Quarter: 2020Q3

REPORT INFORMATION
  Report Type: Spontaneous
  Country: GB (occurrence: GB)
  Receive Date: 20200917
  Receipt Date: 20200917
  Transmission Date: 20201103
  Serious: Yes (Other)
  Sender: FDA-Public Use
  Company Number: GB-MYLANLABS-2020M1078226

PATIENT
  Age: 24 Year
  Sex: Female
  Weight: 54.42 kg

DRUGS (1)
  1. MIRTAZAPINE. [Suspect]
     Active Substance: MIRTAZAPINE
     Indication: DEPRESSION
     Dosage: 30 MILLIGRAM
     Route: 048
     Dates: start: 201810, end: 201906

REACTIONS (1)
  - Acne [Not Recovered/Not Resolved]

NARRATIVE: CASE EVENT DATE: 201812
